FAERS Safety Report 8359088-8 (Version None)
Quarter: 2012Q2

REPORT INFORMATION
  Report Type: 
  Country: None (occurrence: None)
  Receive Date: 20120515
  Receipt Date: 20120511
  Transmission Date: 20120825
  Serious: No
  Sender: FDA-Public Use
  Company Number: US-BIOGENIDEC-2012BI014628

PATIENT
  Sex: Female

DRUGS (1)
  1. AVONEX [Suspect]
     Indication: MULTIPLE SCLEROSIS
     Route: 030
     Dates: start: 20020316

REACTIONS (12)
  - STRESS [None]
  - INJECTION SITE PAIN [None]
  - ERYTHEMA [None]
  - HEPATIC STEATOSIS [None]
  - FLUSHING [None]
  - AMNESIA [None]
  - ANXIETY [None]
  - HYPOAESTHESIA [None]
  - PAIN IN EXTREMITY [None]
  - INJECTION SITE HAEMATOMA [None]
  - BASEDOW'S DISEASE [None]
  - NIGHT SWEATS [None]
